FAERS Safety Report 6588936-7 (Version None)
Quarter: 2010Q1

REPORT INFORMATION
  Report Type: 
  Country: None (occurrence: None)
  Receive Date: 20100218
  Receipt Date: 20100209
  Transmission Date: 20100710
  Serious: Yes (Other)
  Sender: FDA-Public Use
  Company Number: BR-PFIZER INC-2010016912

PATIENT
  Age: 44 Year
  Sex: Female
  Weight: 88 kg

DRUGS (2)
  1. ZYVOX [Suspect]
     Dosage: 600 MG, 2X/DAY
     Route: 042
     Dates: start: 20100122
  2. TIENAM [Concomitant]
     Dosage: 1000 MG, 4X/DAY
     Route: 042

REACTIONS (1)
  - PHLEBITIS [None]
